FAERS Safety Report 12990850 (Version 3)
Quarter: 2016Q4

REPORT INFORMATION
  Report Type: Spontaneous
  Country: TW (occurrence: TW)
  Receive Date: 20161201
  Receipt Date: 20161215
  Transmission Date: 20170207
  Serious: Yes (Other)
  Sender: FDA-Public Use
  Company Number: TW-PFIZER INC-2016551737

PATIENT
  Age: 15 Year
  Sex: Male

DRUGS (1)
  1. GENOTROPIN [Suspect]
     Active Substance: SOMATROPIN
     Indication: GROWTH HORMONE DEFICIENCY
     Dosage: 6.6 IU, 1X/DAY
     Route: 058
     Dates: start: 20160713, end: 20161125

REACTIONS (2)
  - Pelvic inflammatory disease [Unknown]
  - Pelvic pain [Recovering/Resolving]

NARRATIVE: CASE EVENT DATE: 2016
